FAERS Safety Report 16289589 (Version 3)
Quarter: 2019Q2

REPORT INFORMATION
  Report Type: Report from Study
  Country: IL (occurrence: IL)
  Receive Date: 20190509
  Receipt Date: 20190515
  Transmission Date: 20190711
  Serious: Yes (Hospitalization, Other)
  Sender: FDA-Public Use
  Company Number: IL-ACTELION-A-CH2019-185940

PATIENT
  Age: 78 Year
  Sex: Female

DRUGS (11)
  1. UPTRAVI [Suspect]
     Active Substance: SELEXIPAG
     Dosage: 600 MCG, BID
     Route: 048
     Dates: start: 20190307
  2. LOTAN [Concomitant]
  3. PRADAXA [Concomitant]
     Active Substance: DABIGATRAN ETEXILATE MESYLATE
  4. UPTRAVI [Suspect]
     Active Substance: SELEXIPAG
     Dosage: UNK
     Route: 048
     Dates: start: 20190103
  5. UPTRAVI [Suspect]
     Active Substance: SELEXIPAG
     Indication: PULMONARY ARTERIAL HYPERTENSION
     Dosage: 400 MCG, BID
     Route: 048
  6. OPSUMIT [Suspect]
     Active Substance: MACITENTAN
     Indication: PULMONARY ARTERIAL HYPERTENSION
     Dosage: 10 MG, QD
     Route: 048
     Dates: start: 20171226
  7. FOLIC ACID. [Concomitant]
     Active Substance: FOLIC ACID
  8. UPTRAVI [Suspect]
     Active Substance: SELEXIPAG
     Dosage: 800 MCG, BID
     Route: 048
     Dates: start: 20190306
  9. FUSID [Concomitant]
     Indication: DYSPNOEA AT REST
     Dosage: UNK
     Route: 042
  10. CADEX [Concomitant]
  11. FUSID [Concomitant]
     Indication: OEDEMA PERIPHERAL
     Dosage: UNK, Q1WEEK
     Route: 042

REACTIONS (13)
  - Cellulitis [Recovering/Resolving]
  - Accidental overdose [Unknown]
  - Nausea [Recovering/Resolving]
  - Vomiting [Recovering/Resolving]
  - Haemoglobin decreased [Not Recovered/Not Resolved]
  - Dyspnoea at rest [Recovered/Resolved]
  - Skin exfoliation [Recovering/Resolving]
  - Oedema peripheral [Recovering/Resolving]
  - Asthenia [Recovering/Resolving]
  - Pulmonary oedema [Recovered/Resolved]
  - Headache [Recovering/Resolving]
  - Erythema [Recovering/Resolving]
  - Pain in extremity [Not Recovered/Not Resolved]

NARRATIVE: CASE EVENT DATE: 20190122
